FAERS Safety Report 4487982-7 (Version None)
Quarter: 2004Q4

REPORT INFORMATION
  Report Type: 
  Country: None (occurrence: None)
  Receive Date: 20041026
  Receipt Date: 20041012
  Transmission Date: 20050328
  Serious: Yes (Hospitalization, Other)
  Sender: FDA-Public Use
  Company Number: USA040259547

PATIENT
  Age: 69 Year
  Sex: Female
  Weight: 54 kg

DRUGS (6)
  1. FORTEO [Suspect]
     Indication: OSTEOPOROSIS
     Dosage: 20 UG/ 1 DAY
     Dates: start: 20040121
  2. OXYPHENBUTAZONE [Concomitant]
  3. ALBUTEROL W/IPRATROPIUM [Concomitant]
  4. THEOPHYLLINE [Concomitant]
  5. COMBIVENT [Concomitant]
  6. NEXIUM [Concomitant]

REACTIONS (14)
  - CONTUSION [None]
  - DERMATITIS [None]
  - ERYTHEMA [None]
  - INJECTION SITE HAEMORRHAGE [None]
  - INJECTION SITE PAIN [None]
  - MUSCLE CRAMP [None]
  - OXYGEN SATURATION DECREASED [None]
  - PHARMACEUTICAL PRODUCT COMPLAINT [None]
  - PRURITUS [None]
  - PULMONARY OEDEMA [None]
  - RASH [None]
  - RESPIRATORY DISORDER [None]
  - SOFT TISSUE DISORDER [None]
  - URTICARIA [None]
